FAERS Safety Report 16264833 (Version 2)
Quarter: 2019Q2

REPORT INFORMATION
  Report Type: Spontaneous
  Country: DE (occurrence: DE)
  Receive Date: 20190502
  Receipt Date: 20190509
  Transmission Date: 20190711
  Serious: Yes (Other)
  Sender: FDA-Public Use
  Company Number: DE-PFIZER INC-2019181073

PATIENT
  Age: 53 Year
  Weight: 173 kg

DRUGS (1)
  1. METHOTREXATE SODIUM. [Suspect]
     Active Substance: METHOTREXATE SODIUM
     Indication: CENTRAL NERVOUS SYSTEM LYMPHOMA
     Dosage: 10.85 G, CYCLIC (3.5 G/SQM; 10.85 G, INFUSION)

REACTIONS (2)
  - Drug level increased [Recovering/Resolving]
  - Blood creatinine increased [Recovering/Resolving]
